FAERS Safety Report 20109390 (Version 2)
Quarter: 2021Q4

REPORT INFORMATION
  Report Type: Report from Study
  Country: BR (occurrence: BR)
  Receive Date: 20211124
  Receipt Date: 20211130
  Transmission Date: 20220304
  Serious: Yes (Death, Hospitalization, Other)
  Sender: FDA-Public Use
  Company Number: BR-TAKEDA-2021TUS061919

PATIENT
  Age: 66 Year
  Sex: Female
  Weight: 54 kg

DRUGS (1)
  1. MOBOCERTINIB [Suspect]
     Active Substance: MOBOCERTINIB
     Indication: Lung adenocarcinoma
     Dosage: 160 MILLIGRAM, QD
     Route: 048
     Dates: start: 20210807

REACTIONS (6)
  - Malignant neoplasm progression [Unknown]
  - Sepsis [Fatal]
  - Pneumonia aspiration [Fatal]
  - Aspiration [Fatal]
  - Depressed level of consciousness [Unknown]
  - Dyspnoea [Unknown]

NARRATIVE: CASE EVENT DATE: 20210808
